FAERS Safety Report 4464122-1 (Version None)
Quarter: 2004Q3

REPORT INFORMATION
  Report Type: 
  Country: None (occurrence: None)
  Receive Date: 20040929
  Receipt Date: 20040929
  Transmission Date: 20050211
  Serious: Yes (Other)
  Sender: FDA-Public Use
  Company Number: None

PATIENT
  Age: 47 Year
  Sex: Male
  Weight: 95.2554 kg

DRUGS (4)
  1. BUPROPION HCL [Suspect]
     Indication: DEPRESSION
     Dosage: 1 BID ORAL
     Route: 048
     Dates: start: 20040601, end: 20040909
  2. BUPROPION HCL [Suspect]
     Indication: PAIN
     Dosage: 1 BID ORAL
     Route: 048
     Dates: start: 20040601, end: 20040909
  3. BUPROPION HCL [Suspect]
     Indication: DEPRESSION
     Dosage: 3 QAM ORAL
     Route: 048
     Dates: start: 20040801, end: 20040909
  4. BUPROPION HCL [Suspect]
     Indication: PAIN
     Dosage: 3 QAM ORAL
     Route: 048
     Dates: start: 20040801, end: 20040909

REACTIONS (2)
  - DRUG EFFECT DECREASED [None]
  - PHARMACEUTICAL PRODUCT COMPLAINT [None]
